FAERS Safety Report 18665043 (Version 4)
Quarter: 2021Q1

REPORT INFORMATION
  Report Type: Spontaneous
  Country: BG (occurrence: BG)
  Receive Date: 20201225
  Receipt Date: 20210308
  Transmission Date: 20210419
  Serious: Yes (Hospitalization)
  Sender: FDA-Public Use
  Company Number: BG-ROCHE-2739210

PATIENT
  Age: 49 Year
  Sex: Female

DRUGS (20)
  1. MILURIT [Concomitant]
     Active Substance: ALLOPURINOL
     Dosage: 3 INTO 1 TAB
  2. DICYNONE [Concomitant]
     Active Substance: ETHAMSYLATE
  3. MERONEM [Concomitant]
     Active Substance: MEROPENEM
  4. AFLAMIL [Concomitant]
     Active Substance: ACECLOFENAC
     Indication: RHEUMATOID ARTHRITIS
     Route: 048
     Dates: start: 2014
  5. ROACTEMRA [Suspect]
     Active Substance: TOCILIZUMAB
     Indication: RHEUMATOID ARTHRITIS
     Route: 058
     Dates: start: 201506
  6. LIDOCAINE. [Concomitant]
     Active Substance: LIDOCAINE
     Indication: ANAESTHESIA
  7. METAMIZOLE [Concomitant]
     Active Substance: METAMIZOLE
  8. ZAVEDOS [Concomitant]
     Active Substance: IDARUBICIN
     Dates: start: 20201223, end: 20201225
  9. SODIUM BICARBONATE. [Concomitant]
     Active Substance: SODIUM BICARBONATE
  10. QUAMATEL [Concomitant]
     Active Substance: FAMOTIDINE
  11. PARACETAMOL [Concomitant]
     Active Substance: ACETAMINOPHEN
  12. VITAMIN C [Concomitant]
     Active Substance: ASCORBIC ACID
  13. METHOTREXATE. [Concomitant]
     Active Substance: METHOTREXATE
     Indication: RHEUMATOID ARTHRITIS
     Route: 048
     Dates: start: 2014
  14. ALEXAN (CZECH REPUBLIC) [Concomitant]
     Dosage: 24 HR INFUSION
     Dates: start: 20201223, end: 20201229
  15. AMIKACIN. [Concomitant]
     Active Substance: AMIKACIN
     Dates: start: 20201223
  16. POTASSIUM CHLORIDE. [Concomitant]
     Active Substance: POTASSIUM CHLORIDE
  17. VANCOMYCIN [Concomitant]
     Active Substance: VANCOMYCIN
     Dates: start: 20201231, end: 20210114
  18. CALCIUM GLUCONATE. [Concomitant]
     Active Substance: CALCIUM GLUCONATE
  19. ONDANSETRON [Concomitant]
     Active Substance: ONDANSETRON
     Dates: start: 20201223, end: 20201229
  20. SOPRAL (BULGARIA) [Concomitant]

REACTIONS (7)
  - Acute myeloid leukaemia [Recovering/Resolving]
  - Lymphocytosis [Not Recovered/Not Resolved]
  - Fatigue [Not Recovered/Not Resolved]
  - Decreased appetite [Unknown]
  - Gingival hypertrophy [Unknown]
  - Toothache [Unknown]
  - Tooth extraction [Unknown]

NARRATIVE: CASE EVENT DATE: 202011
